FAERS Safety Report 7818335-9 (Version None)
Quarter: 2011Q4

REPORT INFORMATION
  Report Type: 
  Country: None (occurrence: None)
  Receive Date: 20111017
  Receipt Date: 20111007
  Transmission Date: 20120403
  Serious: Yes (Other)
  Sender: FDA-Public Use
  Company Number: NO-ROCHE-1003279

PATIENT
  Sex: Male

DRUGS (4)
  1. PHENYTOIN [Interacting]
     Indication: EPILEPSY
     Route: 065
  2. PHENOBARBITAL TAB [Interacting]
     Indication: EPILEPSY
     Route: 065
  3. AVASTIN [Suspect]
     Indication: COLON CANCER
     Route: 065
  4. PROCHLORPERAZINE [Interacting]
     Route: 065

REACTIONS (2)
  - DRUG INTERACTION [None]
  - DYSTONIA [None]
